FAERS Safety Report 11401439 (Version 3)
Quarter: 2016Q4

REPORT INFORMATION
  Report Type: Report from Study
  Country: CR (occurrence: CR)
  Receive Date: 20150820
  Receipt Date: 20161027
  Transmission Date: 20170206
  Serious: Yes (Other)
  Sender: FDA-Public Use
  Company Number: PHHY2015CR098910

PATIENT
  Age: 62 Year
  Sex: Female

DRUGS (1)
  1. EXELON PATCH [Suspect]
     Active Substance: RIVASTIGMINE
     Indication: PRODUCT USED FOR UNKNOWN INDICATION
     Dosage: 4.6 MG, QD [PATCH 5 (CM2)]
     Route: 062

REACTIONS (4)
  - Dementia [Unknown]
  - Headache [Unknown]
  - Cerebrovascular accident [Unknown]
  - Disease progression [Unknown]
